FAERS Safety Report 25038090 (Version 3)
Quarter: 2025Q1

REPORT INFORMATION
  Report Type: Spontaneous
  Country: TR (occurrence: TR)
  Receive Date: 20250304
  Receipt Date: 20250312
  Transmission Date: 20250409
  Serious: No
  Sender: NOVARTIS
  Company Number: TR-002147023-NVSC2025TR034068

PATIENT
  Age: 48 Year
  Sex: Female

DRUGS (1)
  1. TEGRETOL XR [Suspect]
     Active Substance: CARBAMAZEPINE
     Indication: Epilepsy
     Route: 065

REACTIONS (4)
  - Presyncope [Unknown]
  - Hypoaesthesia [Unknown]
  - Dizziness [Unknown]
  - Product quality issue [Unknown]
